FAERS Safety Report 7287960-9 (Version None)
Quarter: 2011Q1

REPORT INFORMATION
  Report Type: 
  Country: None (occurrence: None)
  Receive Date: 20110211
  Receipt Date: 20101223
  Transmission Date: 20110831
  Serious: Yes (Hospitalization, Other)
  Sender: FDA-Public Use
  Company Number: US-BAYER-201033586NA

PATIENT
  Sex: Female

DRUGS (3)
  1. YAZ [Suspect]
     Indication: ACNE
     Dosage: UNK
     Dates: start: 20070401, end: 20100101
  2. YASMIN [Suspect]
     Indication: ACNE
  3. OCELLA [Suspect]
     Indication: ACNE

REACTIONS (4)
  - PULMONARY EMBOLISM [None]
  - PAIN [None]
  - PULMONARY THROMBOSIS [None]
  - VENTRICULAR TACHYCARDIA [None]
